FAERS Safety Report 15808913 (Version 5)
Quarter: 2019Q3

REPORT INFORMATION
  Report Type: Spontaneous
  Country: US (occurrence: US)
  Receive Date: 20190110
  Receipt Date: 20190815
  Transmission Date: 20191004
  Serious: Yes (Hospitalization, Other)
  Sender: FDA-Public Use
  Company Number: US-PFIZER INC-2017171475

PATIENT
  Age: 60 Year
  Sex: Female
  Weight: 75 kg

DRUGS (59)
  1. LYRICA [Suspect]
     Active Substance: PREGABALIN
     Indication: MIGRAINE
     Dosage: 150 MG, DAILY (3 CAPSULES TAKEN BY MOUTH TOWARDS THE EVENING DAILY)
     Route: 048
     Dates: start: 201612
  2. SYNTHROID [Concomitant]
     Active Substance: LEVOTHYROXINE SODIUM
     Indication: HYPOTHYROIDISM
     Dosage: 75 UG, 1X/DAY
     Route: 048
     Dates: start: 2000
  3. PLAQUENIL [Concomitant]
     Active Substance: HYDROXYCHLOROQUINE SULFATE
     Dosage: 200 MG, DAILY
     Route: 048
     Dates: start: 201806
  4. POTASSIUM CITRATE [CITRIC ACID;POTASSIUM CITRATE] [Concomitant]
     Dosage: UNK
     Route: 048
     Dates: start: 2015
  5. FLONASE [Concomitant]
     Active Substance: FLUTICASONE PROPIONATE
     Dosage: UNK, 1X/DAY (50 MCG/ACTUATION NASAL SPRAY: USE 2 SPRAYS IN EACH NOSTRIL ONCE DAILY)
     Route: 045
     Dates: start: 2000
  6. BENEFIBER FIBER SUPPLEMENT [Concomitant]
     Dosage: UNK UNK, AS NEEDED (TAKE 1 PACKET BY MOUTH ONCE DAILY AS NEEDED)
     Route: 048
  7. ZANAFLEX [Concomitant]
     Active Substance: TIZANIDINE HYDROCHLORIDE
     Dosage: 2 MG, 3X/DAY (2 MG TABLET: TAKE 1 TABLET BY MOUTH EVERY 8 HOURS AS NEEDED)
     Route: 048
  8. RETIN-A [Concomitant]
     Active Substance: TRETINOIN
     Dosage: UNK UNK, 1X/DAY (0.1 % CREAM: APPLY A PEA SIZE AMOUNT TO A DRY FACE AT BEDTIME)
  9. CYMBALTA [Concomitant]
     Active Substance: DULOXETINE HYDROCHLORIDE
     Indication: NECK PAIN
     Dosage: 30 MG, DAILY
     Route: 048
  10. BACTROBAN [Concomitant]
     Active Substance: MUPIROCIN\MUPIROCIN CALCIUM
     Dosage: 100 ML, 2X/DAY (EACH NOSTRIL WITH 50ML TWICE DAILY. MIX ONE 22 G TUBE OINTMENT IN1 LITER SALINE)
     Route: 045
  11. OMNICEF [Concomitant]
     Active Substance: CEFDINIR
     Dosage: 300 MG, 1X/DAY
     Route: 048
     Dates: end: 2015
  12. DIFLUCAN [Concomitant]
     Active Substance: FLUCONAZOLE
     Dosage: 150 MG, SINGLE (1 TABLET BY MOUTH ONE TIME ONLY FOR 1 DOSE)
     Route: 048
  13. TEMOVATE [Concomitant]
     Active Substance: CLOBETASOL PROPIONATE
     Dosage: 0.05 % CREAM: APPLY 2-3 TIMES DAILY AS NEEDED SPARINGLY. THEN APPLY A MOISTURIZER
  14. XOLAIR [Concomitant]
     Active Substance: OMALIZUMAB
     Dosage: UNK, MONTHLY (INJECT SUBCUTANEOUSLY ONCE EVERY MONTH)
     Route: 058
     Dates: start: 2005
  15. PANTOPRAZOLE [Concomitant]
     Active Substance: PANTOPRAZOLE
     Indication: OESOPHAGEAL DISORDER
     Dosage: UNK , TAKEN IN THE DAYTIME
  16. MIRALAX [Concomitant]
     Active Substance: POLYETHYLENE GLYCOL 3350
     Dosage: 17 G, AS NEEDED (17 GRAM/DOSE POWDER: TAKE 1 CAPFUL ONCE DAILY MIXED IN WATER/JUICE AS NEEDED)
     Dates: start: 2015
  17. VITAMIN D [ERGOCALCIFEROL] [Concomitant]
     Active Substance: ERGOCALCIFEROL
     Dosage: 1 DF, 2X/WEEK (50,000 UNIT CAPSULE: TAKE 1 CAPSULE BY MOUTH EVERY MONDAY AND FRIDAY)
     Route: 048
  18. GABAPENTIN. [Concomitant]
     Active Substance: GABAPENTIN
     Indication: NECK PAIN
     Dosage: 400 MG, 1X/DAY (FOUR 100MG CAPSULES BY MOUTH AT BEDTIME)
     Route: 048
     Dates: start: 20170314
  19. LYRICA [Suspect]
     Active Substance: PREGABALIN
     Indication: VERTIGO
     Dosage: 25 MG, DAILY (25MG CAPSULE: ONE BY MOUTH EVERY EVENING)
     Route: 048
     Dates: start: 20170413
  20. PLAQUENIL [Concomitant]
     Active Substance: HYDROXYCHLOROQUINE SULFATE
     Indication: RHEUMATOID ARTHRITIS
     Dosage: UNK
     Dates: start: 20180101
  21. CYMBALTA [Concomitant]
     Active Substance: DULOXETINE HYDROCHLORIDE
     Indication: NEURALGIA
     Dosage: UNK
     Dates: start: 201801
  22. CYMBALTA [Concomitant]
     Active Substance: DULOXETINE HYDROCHLORIDE
     Indication: BACK PAIN
     Dosage: 60 MG, DAILY
     Route: 048
     Dates: start: 201808
  23. PROVENTIL HFA [SALBUTAMOL] [Concomitant]
     Indication: DYSPNOEA
  24. CEFDINIR. [Concomitant]
     Active Substance: CEFDINIR
     Dosage: 300 MG, 1X/DAY (300MG ONE TABLET BY MOUTH ONCE A DAY)
     Route: 048
     Dates: end: 2015
  25. DULERA [Concomitant]
     Active Substance: FORMOTEROL FUMARATE DIHYDRATE\MOMETASONE FUROATE
     Dosage: UNK, 2X/DAY (200-5 MCG/ACTUATION INHALER: INHALE 2 PUFFS AS INSTRUCTED TWICE DAILY)
     Route: 055
     Dates: start: 2004
  26. MYCOSTATIN [Concomitant]
     Active Substance: NYSTATIN
     Dosage: 2 ML, 4X/DAY (100,000 UNIT/ML SUSPENSION: TAKE 2 ML BY MOUTH-FOUR TIMES DAILY FOR10 DAYS)
     Route: 048
  27. ATARAXONE [HYDROXYZINE HYDROCHLORIDE] [Concomitant]
     Dosage: 25 MG, 2X/DAY
     Route: 048
  28. GABAPENTIN. [Concomitant]
     Active Substance: GABAPENTIN
     Indication: NEURALGIA
     Dosage: 50 MG, UNK
     Dates: start: 2016
  29. LYRICA [Suspect]
     Active Substance: PREGABALIN
     Indication: NEURALGIA
     Dosage: 50 MG, DAILY (25 MG CAPSULE: TAKE 2 CAPSULE BY MOUTH DAILY AT BEDTIME)
     Route: 048
     Dates: start: 20170413
  30. LYRICA [Suspect]
     Active Substance: PREGABALIN
     Indication: BACK PAIN
     Dosage: 50 MG, 3X/DAY
     Route: 048
  31. BACTROBAN [Concomitant]
     Active Substance: MUPIROCIN\MUPIROCIN CALCIUM
     Dosage: UNK
     Dates: start: 2008
  32. XANAX [Concomitant]
     Active Substance: ALPRAZOLAM
     Dosage: 0.25 MG, 1X/DAY ((TAKE 1 TABLET BY MOUTH ONCE DAILY AS NEEDED)
     Route: 048
     Dates: start: 2003
  33. ESTRACE [Concomitant]
     Active Substance: ESTRADIOL
     Dosage: 1 G, 2X/WEEK (0.01 % (0.1 MG/GRAM) VAGINAL CREAM: USE 1 G VAGINALLY TWICE A WEEK)
     Route: 067
     Dates: start: 2010
  34. TAGAMET [Concomitant]
     Active Substance: CIMETIDINE
     Dosage: 400 MG, 1X/DAY
     Route: 048
  35. TESSALON [Concomitant]
     Active Substance: BENZONATATE
     Dosage: UNK
  36. TAGAMET [Concomitant]
     Active Substance: CIMETIDINE
     Indication: OESOPHAGEAL DISORDER
     Dosage: UNK  TAKEN AT NIGHT
     Dates: start: 2014
  37. MYCELEX TROCHE [Concomitant]
     Dosage: 10 MG, (10 MG TROCHE: USE 1 TROCHE AS INSTRUCTED FIVE TIMES DAILY)
     Dates: start: 2015
  38. XOPENEX [Concomitant]
     Active Substance: LEVALBUTEROL HYDROCHLORIDE
     Indication: ASTHMA
     Dosage: 3 ML, AS NEEDED (0.63 MG/3 ML NEBULIZER SOLUTION: USE 3 ML VIA NEBULIZER EVERY 4 HOURS AS NEEDED)
     Dates: start: 2005
  39. SINGULAIR [Concomitant]
     Active Substance: MONTELUKAST SODIUM
     Dosage: 10 MG, DAILY
     Route: 048
     Dates: start: 2004
  40. COLACE [Concomitant]
     Active Substance: DOCUSATE SODIUM
     Indication: CONSTIPATION
     Dosage: 100 MG, 2X/DAY, AS NEEDED (1 CAPSULE BY MOUTH TWICE DAILY )
     Route: 048
  41. AMBIEN [Concomitant]
     Active Substance: ZOLPIDEM TARTRATE
     Dosage: 10 MG, 1X/DAY(1 TABLET BY MOUTH DAILY AT BEDTIME)
  42. GABAPENTIN. [Concomitant]
     Active Substance: GABAPENTIN
     Indication: BACK PAIN
  43. LYRICA [Suspect]
     Active Substance: PREGABALIN
     Indication: NECK PAIN
     Dosage: 50 MG, 3X/DAY
  44. LYRICA [Suspect]
     Active Substance: PREGABALIN
     Indication: INTERVERTEBRAL DISC DEGENERATION
  45. PROTONIX [Concomitant]
     Active Substance: PANTOPRAZOLE SODIUM
     Dosage: 40 MG, 2X/DAY
     Route: 048
     Dates: end: 2018
  46. GABAPENTIN. [Concomitant]
     Active Substance: GABAPENTIN
     Indication: FIBROMYALGIA
     Dosage: 200 MG, 1X/DAY (PRESCRIBED 100MG TWO CAPSULES BY MOUTH AT BEDTIME)
     Route: 048
     Dates: start: 2014
  47. LYRICA [Suspect]
     Active Substance: PREGABALIN
     Indication: FIBROMYALGIA
     Dosage: 50 MG, 1X/DAY
     Dates: start: 20170615
  48. BACTROBAN [Concomitant]
     Active Substance: MUPIROCIN\MUPIROCIN CALCIUM
     Dosage: UNK, 2X/DAY (2 % OINTMENT: APPLY 1 APPLICATION TO AFFECTED AREA TWICE DAILY)
  49. ALBUTEROL HFA [Concomitant]
     Active Substance: ALBUTEROL SULFATE
     Indication: WHEEZING
     Dosage: 90 MCG/ACTUATION INHALER: INHALE 2 PUFFS AS INSTRUCTED EVERY 4 HOURS AS NEEDED
     Route: 055
     Dates: start: 2004
  50. ALBUTEROL HFA [Concomitant]
     Active Substance: ALBUTEROL SULFATE
     Indication: DYSPNOEA
  51. PROVENTIL HFA [SALBUTAMOL] [Concomitant]
     Indication: WHEEZING
     Dosage: 90 MCG/ACTUATION INHALER: INHALE 2 PUFFS AS INSTRUCTED EVERY 4 HOURS AS NEEDED
     Route: 055
     Dates: start: 2004
  52. AMITIZA [Concomitant]
     Active Substance: LUBIPROSTONE
     Dosage: 8 UG, 2X/DAY (8 MCG CAPSULE: TAKE 1 CAPSULE BY MOUTH TWICE DAILY WITH MEALS)
     Route: 048
  53. DIOVAN [Concomitant]
     Active Substance: VALSARTAN
     Dosage: 160 MG, DAILY
     Route: 048
  54. PULMICORT TURBUHALER [Concomitant]
     Active Substance: BUDESONIDE
     Dosage: 2 ML, 1X/DAY, (0.25 MG/2 ML NEBULIZER SOLUTION: USE 2 ML VIA NEBULIZER ONCE DAILY)
     Dates: start: 2004
  55. ALLEGRA ALLERGY [Concomitant]
     Active Substance: FEXOFENADINE HYDROCHLORIDE
     Dosage: 60 MG, 1X/DAY
     Route: 048
     Dates: start: 2000
  56. EPIPEN [Concomitant]
     Active Substance: EPINEPHRINE
     Dosage: 0.3 MG/ML, UNK (0.3 MG/0.3 ML AUTO-INJECTOR)
  57. MAGNESIUM [Concomitant]
     Active Substance: MAGNESIUM
     Dosage: 250 MG, 1X/DAY
     Route: 048
  58. GABAPENTIN. [Concomitant]
     Active Substance: GABAPENTIN
     Indication: MIGRAINE
  59. PROTONIX [Concomitant]
     Active Substance: PANTOPRAZOLE SODIUM
     Dosage: UNK

REACTIONS (8)
  - Headache [Recovered/Resolved]
  - Pain in extremity [Not Recovered/Not Resolved]
  - Bronchitis [Recovered/Resolved]
  - Cough [Unknown]
  - Pneumonia [Recovered/Resolved]
  - Condition aggravated [Not Recovered/Not Resolved]
  - Fatigue [Recovered/Resolved]
  - Vertigo [Recovered/Resolved]

NARRATIVE: CASE EVENT DATE: 20100112
